FAERS Safety Report 14723281 (Version 1)
Quarter: 2018Q2

REPORT INFORMATION
  Report Type: Spontaneous
  Country: US (occurrence: US)
  Receive Date: 20180401
  Receipt Date: 20180401
  Transmission Date: 20180711
  Serious: Yes (Life-Threatening, Hospitalization)
  Sender: FDA-Public Use
  Company Number: None

PATIENT
  Age: 57 Year
  Sex: Male
  Weight: 50.67 kg

DRUGS (1)
  1. MELOXICAM. [Suspect]
     Active Substance: MELOXICAM
     Indication: PAIN
     Route: 048
     Dates: start: 20100323, end: 20180310

REACTIONS (6)
  - Enterococcus test positive [None]
  - Sepsis [None]
  - Chronic obstructive pulmonary disease [None]
  - Blood magnesium decreased [None]
  - Diverticulum [None]
  - Gastric haemorrhage [None]

NARRATIVE: CASE EVENT DATE: 20180310
